FAERS Safety Report 4395422-1 (Version None)
Quarter: 2004Q3

REPORT INFORMATION
  Report Type: 
  Country: None (occurrence: None)
  Receive Date: 20040713
  Receipt Date: 20040701
  Transmission Date: 20050211
  Serious: Yes (Death)
  Sender: FDA-Public Use
  Company Number: 200416735GDDC

PATIENT
  Age: 47 Year
  Sex: Female

DRUGS (6)
  1. ANTINEOPLASTIC AND IMMUNOSUPPRESSIVE AGENTS [Suspect]
     Indication: SMALL CELL CARCINOMA
     Route: 042
     Dates: start: 19990817, end: 19990829
  2. DOCETAXEL [Suspect]
     Indication: SMALL CELL CARCINOMA
     Route: 042
     Dates: start: 19990824, end: 19990824
  3. DOCETAXEL [Suspect]
     Indication: VAGINAL CANCER
     Route: 042
     Dates: start: 19990824, end: 19990824
  4. LORAZEPAM [Concomitant]
  5. PRIMAXIN [Concomitant]
  6. WARFARIN SODIUM [Concomitant]

REACTIONS (1)
  - THROMBOCYTOPENIA [None]
